APPROVED DRUG PRODUCT: PROCAINAMIDE HYDROCHLORIDE
Active Ingredient: PROCAINAMIDE HYDROCHLORIDE
Strength: 1GM
Dosage Form/Route: TABLET, EXTENDED RELEASE;ORAL
Application: A040111 | Product #001
Applicant: ANI PHARMACEUTICALS INC
Approved: Dec 13, 1996 | RLD: No | RS: No | Type: DISCN